FAERS Safety Report 5406058-5 (Version None)
Quarter: 2007Q3

REPORT INFORMATION
  Report Type: 
  Country: None (occurrence: None)
  Receive Date: 20070806
  Receipt Date: 20070731
  Transmission Date: 20080115
  Serious: Yes (Other)
  Sender: FDA-Public Use
  Company Number: B0480998A

PATIENT
  Age: 35 Year
  Sex: Male

DRUGS (2)
  1. AUGMENTIN '125' [Suspect]
     Indication: BRONCHITIS
     Dosage: 625MG THREE TIMES PER DAY
     Dates: start: 20070717, end: 20070720
  2. AEROLIN [Suspect]
     Indication: BRONCHITIS
     Dosage: 2PUFF THREE TIMES PER DAY
     Route: 055
     Dates: start: 20070717, end: 20070719

REACTIONS (6)
  - ANAPHYLACTIC SHOCK [None]
  - DIZZINESS [None]
  - DYSPHONIA [None]
  - FATIGUE [None]
  - LIP SWELLING [None]
  - RASH MACULAR [None]
